FAERS Safety Report 12785148 (Version 2)
Quarter: 2016Q3

REPORT INFORMATION
  Report Type: Spontaneous
  Country: CO (occurrence: CO)
  Receive Date: 20160927
  Receipt Date: 20160927
  Transmission Date: 20161109
  Serious: Yes (Hospitalization)
  Sender: FDA-Public Use
  Company Number: CO-BRACCO-000134

PATIENT
  Age: 53 Year
  Sex: Female

DRUGS (1)
  1. IOPAMIRON [Suspect]
     Active Substance: IOPAMIDOL
     Indication: COMPUTERISED TOMOGRAM ABDOMEN
     Route: 042
     Dates: start: 20160826, end: 20160826

REACTIONS (6)
  - Multiple use of single-use product [Recovered/Resolved]
  - Respiratory arrest [Recovered/Resolved]
  - Product physical issue [Recovered/Resolved]
  - Chills [Recovered/Resolved]
  - Anxiety [Recovered/Resolved]
  - Dyspnoea [Recovered/Resolved]

NARRATIVE: CASE EVENT DATE: 20160826
